FAERS Safety Report 4333760-9 (Version None)
Quarter: 2004Q2

REPORT INFORMATION
  Report Type: 
  Country: None (occurrence: None)
  Receive Date: 20040402
  Receipt Date: 20040329
  Transmission Date: 20050107
  Serious: Yes (Hospitalization)
  Sender: FDA-Public Use
  Company Number: 2004206001US

PATIENT
  Age: 81 Year
  Sex: Male

DRUGS (7)
  1. CELEBREX [Suspect]
     Indication: ARTHRITIS
     Dosage: QD, ORAL
     Route: 048
     Dates: start: 20020115, end: 20020501
  2. MUSE [Concomitant]
  3. ATROVENT [Concomitant]
  4. SEREVENT [Concomitant]
  5. AEOBID (FLUNISOLIDE) [Concomitant]
  6. VEETIDS [Concomitant]
  7. DOXYCYCLINE [Concomitant]

REACTIONS (1)
  - HAEMATEMESIS [None]
